FAERS Safety Report 25625783 (Version 3)
Quarter: 2025Q3

REPORT INFORMATION
  Report Type: Report from Study
  Country: EU (occurrence: EU)
  Receive Date: 20250731
  Receipt Date: 20250929
  Transmission Date: 20251021
  Serious: Yes (Other)
  Sender: ASTELLAS
  Company Number: EU-ASTELLAS-2025-AER-041527

PATIENT
  Age: 69 Year
  Sex: Male

DRUGS (11)
  1. ENFORTUMAB VEDOTIN-EJFV [Suspect]
     Active Substance: ENFORTUMAB VEDOTIN-EJFV
     Indication: Transitional cell carcinoma metastatic
     Route: 042
     Dates: start: 20250123
  2. ENFORTUMAB VEDOTIN-EJFV [Suspect]
     Active Substance: ENFORTUMAB VEDOTIN-EJFV
     Route: 042
     Dates: start: 20250327
  3. ASPIRIN [Concomitant]
     Active Substance: ASPIRIN
     Indication: Cardiovascular disorder
     Route: 065
     Dates: start: 20210505
  4. AMIODARONE [Concomitant]
     Active Substance: AMIODARONE
     Indication: Cardiovascular disorder
     Route: 065
     Dates: start: 20230612
  5. EZETIMIBE\ROSUVASTATIN [Concomitant]
     Active Substance: EZETIMIBE\ROSUVASTATIN
     Indication: Hypercholesterolaemia
     Route: 065
     Dates: start: 20230612
  6. ALFUZOSIN [Concomitant]
     Active Substance: ALFUZOSIN
     Indication: Benign prostatic hyperplasia
     Route: 065
     Dates: start: 20230711
  7. SEMAGLUTIDE [Concomitant]
     Active Substance: SEMAGLUTIDE
     Indication: Diabetes mellitus
     Route: 065
     Dates: start: 20230711
  8. PREDNISONE [Concomitant]
     Active Substance: PREDNISONE
     Indication: Skin reaction
     Dosage: 12.5 MG, 1 TABLET PER DAY?ONGOING
     Route: 065
     Dates: start: 20250311
  9. NALOXONE HYDROCHLORIDE\OXYCODONE HYDROCHLORIDE [Concomitant]
     Active Substance: NALOXONE HYDROCHLORIDE\OXYCODONE HYDROCHLORIDE
     Indication: Spinal pain
     Route: 065
     Dates: start: 20250306
  10. NALDEMEDINE [Concomitant]
     Active Substance: NALDEMEDINE
     Indication: Astringent therapy
     Dosage: 200 MCG, 1 TABLET PER DAY,?ONGOING
     Route: 065
     Dates: start: 20250603
  11. PREGABALIN [Concomitant]
     Active Substance: PREGABALIN
     Indication: Neuropathy peripheral
     Dosage: 75 MG, 1 CPR IN THE EVENING,?ONGOING
     Route: 065
     Dates: start: 20250703

REACTIONS (1)
  - Xerophthalmia [Not Recovered/Not Resolved]

NARRATIVE: CASE EVENT DATE: 20250717
